FAERS Safety Report 19462432 (Version 1)
Quarter: 2021Q2

REPORT INFORMATION
  Report Type: Spontaneous
  Country: FR (occurrence: FR)
  Receive Date: 20210625
  Receipt Date: 20210625
  Transmission Date: 20210717
  Serious: Yes (Hospitalization)
  Sender: FDA-Public Use
  Company Number: FR-ANIPHARMA-2021-FR-000132

PATIENT
  Age: 69 Year
  Sex: Female
  Weight: 39 kg

DRUGS (14)
  1. ARIMIDEX [Suspect]
     Active Substance: ANASTROZOLE
     Indication: BREAST CANCER
     Dosage: 1 MG DAILY
     Route: 048
     Dates: start: 201808, end: 20210601
  2. ACTISKENAN [Concomitant]
     Active Substance: MORPHINE SULFATE
     Dosage: 1 DF DAILY
     Route: 048
     Dates: start: 20210530
  3. SMECTA [Concomitant]
     Active Substance: MONTMORILLONITE
     Dosage: 3 DF DAILY
     Route: 048
     Dates: start: 20210531
  4. SPASFON LYOC [Concomitant]
     Active Substance: PHLOROGLUCINOL
     Dosage: 3 DF DAILY
     Route: 048
     Dates: start: 20210531
  5. SKENAN [Concomitant]
     Active Substance: MORPHINE SULFATE
     Dosage: 1 DF DAILY
     Route: 048
     Dates: start: 20210530
  6. COMIRNATY [Suspect]
     Active Substance: TOZINAMERAN
     Route: 065
     Dates: start: 202105, end: 20210520
  7. PARACETAMOL [Concomitant]
     Active Substance: ACETAMINOPHEN
     Dosage: 3 G DAILY
     Route: 065
     Dates: start: 20210531
  8. LOPERAMIDE HYDROCHLORIDE. [Concomitant]
     Active Substance: LOPERAMIDE HYDROCHLORIDE
     Dosage: 2 DF DAILY
     Route: 048
     Dates: start: 20210531
  9. INNOHEP [Concomitant]
     Active Substance: TINZAPARIN SODIUM
     Dosage: 7000 IU DAILY
     Route: 065
  10. LANSOPRAZOLE. [Concomitant]
     Active Substance: LANSOPRAZOLE
     Dosage: 15 MG DAILY
     Route: 048
     Dates: start: 20210531
  11. XELODA [Suspect]
     Active Substance: CAPECITABINE
     Dosage: 1650 MG BID
     Route: 048
     Dates: start: 201811, end: 20210531
  12. XGEVA [Concomitant]
     Active Substance: DENOSUMAB
     Dosage: 1 DF MONTH
     Route: 058
  13. CACIT VITAMINE D3 [Concomitant]
     Active Substance: CALCIUM CARBONATE\CHOLECALCIFEROL
     Dosage: 1 DF DAILY
     Route: 048
  14. PRIMPERAN [Concomitant]
     Active Substance: METOCLOPRAMIDE HYDROCHLORIDE
     Dosage: 1 DF Q8H
     Route: 065
     Dates: start: 20210531

REACTIONS (2)
  - Intestinal ischaemia [Not Recovered/Not Resolved]
  - Aortic thrombosis [Not Recovered/Not Resolved]

NARRATIVE: CASE EVENT DATE: 20210505
